FAERS Safety Report 11387431 (Version 1)
Quarter: 2015Q3

REPORT INFORMATION
  Report Type: Spontaneous
  Country: CZ (occurrence: CZ)
  Receive Date: 20150817
  Receipt Date: 20150817
  Transmission Date: 20151125
  Serious: Yes (Hospitalization)
  Sender: FDA-Public Use
  Company Number: CZ-EISAI MEDICAL RESEARCH-EC-2015-009605

PATIENT
  Age: 46 Year
  Sex: Female
  Weight: 65 kg

DRUGS (1)
  1. HALAVEN [Suspect]
     Active Substance: ERIBULIN MESYLATE
     Indication: BREAST CANCER
     Route: 041
     Dates: start: 20140605, end: 20140605

REACTIONS (4)
  - Thrombocytopenia [Recovered/Resolved]
  - Aphthous ulcer [Recovered/Resolved]
  - Febrile neutropenia [Recovered/Resolved]
  - Liver disorder [Recovered/Resolved with Sequelae]

NARRATIVE: CASE EVENT DATE: 20140611
